FAERS Safety Report 20986088 (Version 1)
Quarter: 2022Q2

REPORT INFORMATION
  Report Type: Report from Study
  Country: CA (occurrence: CA)
  Receive Date: 20220621
  Receipt Date: 20220621
  Transmission Date: 20220721
  Serious: Yes (Other)
  Sender: FDA-Public Use
  Company Number: CA-TAKEDA-2022TUS037635

PATIENT
  Age: 66 Year
  Sex: Male

DRUGS (4)
  1. VEDOLIZUMAB [Suspect]
     Active Substance: VEDOLIZUMAB
     Indication: Colitis ulcerative
     Dosage: 300 MILLIGRAM
     Route: 042
     Dates: start: 20220601
  2. HYDROCORTISONE [Concomitant]
     Active Substance: HYDROCORTISONE
     Dosage: UNK
  3. MESALAMINE [Concomitant]
     Active Substance: MESALAMINE
     Dosage: UNK
  4. PREDNISONE [Concomitant]
     Active Substance: PREDNISONE
     Dosage: UNK

REACTIONS (7)
  - Syncope [Unknown]
  - Dizziness [Recovered/Resolved]
  - Hepatic cyst [Unknown]
  - Hypoglycaemia [Recovered/Resolved]
  - Flank pain [Not Recovered/Not Resolved]
  - Vertigo [Unknown]
  - Headache [Recovered/Resolved]
